FAERS Safety Report 8553908-X (Version None)
Quarter: 2012Q3

REPORT INFORMATION
  Report Type: 
  Country: None (occurrence: None)
  Receive Date: 20120731
  Receipt Date: 20120720
  Transmission Date: 20120928
  Serious: Yes (Hospitalization, Other)
  Sender: FDA-Public Use
  Company Number: JP-009507513-2012SP022480

PATIENT

DRUGS (42)
  1. REBETOL [Suspect]
     Indication: HEPATITIS C
     Dosage: 600 MG, QD
     Route: 048
     Dates: start: 20120117, end: 20120229
  2. REBETOL [Suspect]
     Route: 048
     Dates: start: 20120208, end: 20120214
  3. PAXIL [Suspect]
     Indication: PRODUCT USED FOR UNKNOWN INDICATION
     Dosage: 3 DF, QD
     Route: 048
  4. HI-Z [Concomitant]
     Indication: ANXIETY
     Dosage: HI -Z FINE GRANULES 20 PERCENT 0.5 GRAM
     Route: 048
  5. [COMPOSITION UNSPECIFIED] [Concomitant]
     Indication: INSOMNIA
     Dosage: UPDATE(11JUN2012)
     Route: 048
     Dates: start: 20120229
  6. PEG-INTRON [Suspect]
     Indication: HEPATITIS C
     Dosage: 80MCG/WEEK
     Route: 058
     Dates: start: 20120117, end: 20120201
  7. PEG-INTRON [Suspect]
     Dosage: 1.0MCG/KG/WEEK
     Route: 058
     Dates: start: 20120416, end: 20120430
  8. PEGINTERFERON ALFA-2B [Suspect]
     Dosage: 1.5 ?G/KG, QW
     Route: 051
     Dates: start: 20120229, end: 20120415
  9. PEGINTERFERON ALFA-2B [Suspect]
     Dosage: 1.5 ?G/KG, QW
     Route: 051
     Dates: start: 20120501
  10. REBETOL [Suspect]
     Dosage: 200 MG, QD
     Route: 048
     Dates: start: 20120409, end: 20120415
  11. GANATON [Concomitant]
     Indication: PRODUCT USED FOR UNKNOWN INDICATION
     Dosage: 50 MG, QD
     Route: 048
     Dates: start: 20120305
  12. PRIMEPERANI [Concomitant]
     Indication: PRODUCT USED FOR UNKNOWN INDICATION
     Dosage: UPDATE(11JUN2012)
     Route: 048
     Dates: end: 20120422
  13. PEGINTERFERON ALFA-2B [Suspect]
     Dosage: 1.0 ?G/KG, QW
     Route: 051
     Dates: start: 20120416, end: 20120430
  14. NIZATIDINE [Concomitant]
     Indication: PRODUCT USED FOR UNKNOWN INDICATION
     Dosage: 75 MG TABS
     Route: 048
     Dates: start: 20120305
  15. TALION (BEPOTASTINE BESYLATE) [Concomitant]
     Indication: RHINITIS ALLERGIC
     Dosage: UPDATE(11JUN2012)
     Route: 048
     Dates: start: 20120402, end: 20120409
  16. PEG-INTRON [Suspect]
     Dosage: 1.5MCG/KG/WEEK
     Route: 058
     Dates: start: 20120229, end: 20120415
  17. TELAVIC [Suspect]
     Route: 048
     Dates: start: 20120229, end: 20120415
  18. PEGINTERFERON ALFA-2B [Suspect]
     Dosage: 50 ?G/KG, QW
     Route: 051
     Dates: start: 20120208, end: 20120215
  19. ANTIVIRAL (UNSPECIFIED) [Suspect]
     Dosage: 1500 MG, QD
     Route: 048
     Dates: start: 20120229, end: 20120415
  20. MAGMITT [Concomitant]
     Indication: CONSTIPATION
     Dosage: 990 MG, QD
     Route: 048
     Dates: start: 20120313
  21. TELAVIC [Suspect]
     Route: 048
     Dates: start: 20120208, end: 20120214
  22. PEGINTERFERON ALFA-2B [Suspect]
     Indication: HEPATITIS C
     Dosage: 80 ?G/KG, QW
     Route: 051
     Dates: start: 20120117, end: 20120201
  23. REBETOL [Suspect]
     Dosage: 400 MG, QD
     Route: 048
     Dates: start: 20120507, end: 20120513
  24. REBETOL [Suspect]
     Route: 048
     Dates: start: 20120215, end: 20120229
  25. DEPAS [Concomitant]
     Indication: PRODUCT USED FOR UNKNOWN INDICATION
     Dosage: IRRITATION
     Route: 048
     Dates: start: 20120308, end: 20120315
  26. PRIMEPERANI [Concomitant]
     Dosage: UPDATE(11JUN2012)
     Route: 048
     Dates: start: 20120501
  27. TELAVIC [Suspect]
     Indication: HEPATITIS C
     Route: 048
     Dates: start: 20120117, end: 20120207
  28. ANTIVIRAL (UNSPECIFIED) [Suspect]
     Indication: HEPATITIS C
     Dosage: 2250 MG, QD
     Route: 048
     Dates: start: 20120117, end: 20120229
  29. GANATON [Concomitant]
     Dosage: UPDATE(11JUN2012)
     Route: 048
  30. ZOLPIDEM [Concomitant]
     Indication: INSOMNIA
     Dosage: UPDATE(11JUN2012)
     Route: 048
  31. TELAVIC [Suspect]
     Route: 048
     Dates: start: 20120215, end: 20120229
  32. REBETOL [Suspect]
     Dosage: 200 MG, QD
     Route: 048
     Dates: start: 20120501, end: 20120506
  33. REBETOL [Suspect]
     Dosage: 600 MG, QD
     Route: 048
     Dates: start: 20120514
  34. PEG-INTRON [Suspect]
     Dosage: 1.5MCG/KG/WEEK
     Route: 058
     Dates: start: 20120501
  35. REBETOL [Suspect]
     Dosage: 200 MG, QD
     Route: 048
     Dates: start: 20120229, end: 20120312
  36. REBETOL [Suspect]
     Dosage: 400 MG, QD
     Route: 048
     Dates: start: 20120313, end: 20120408
  37. REBETOL [Suspect]
     Route: 048
     Dates: start: 20120117, end: 20120207
  38. PAXIL [Suspect]
     Indication: ADVERSE EVENT
     Route: 048
     Dates: start: 20120201
  39. LOXONIN [Concomitant]
     Indication: PROPHYLAXIS
     Dosage: UPDATE(11JUN2012)
     Route: 048
     Dates: start: 20120229, end: 20120422
  40. DOGMATYL [Concomitant]
     Indication: PRODUCT USED FOR UNKNOWN INDICATION
     Dosage: UPDATE(11JUN2012)
     Route: 048
     Dates: start: 20120229, end: 20120308
  41. HI-Z [Concomitant]
     Indication: PRODUCT USED FOR UNKNOWN INDICATION
     Dosage: UPDATE(11JUN2012)
     Route: 048
     Dates: end: 20120520
  42. PEG-INTRON [Suspect]
     Dosage: 50MCG/WEEK
     Route: 058
     Dates: start: 20120208, end: 20120215

REACTIONS (2)
  - MALAISE [None]
  - ANAEMIA [None]
